FAERS Safety Report 5619668-7 (Version None)
Quarter: 2008Q1

REPORT INFORMATION
  Report Type: 
  Country: None (occurrence: None)
  Receive Date: 20080208
  Receipt Date: 20080207
  Transmission Date: 20080703
  Serious: Yes (Other)
  Sender: FDA-Public Use
  Company Number: US-JNJFOC-20080107513

PATIENT
  Age: 5 Decade
  Sex: Female

DRUGS (3)
  1. REMICADE [Suspect]
     Indication: CROHN'S DISEASE
     Route: 042
  2. PREDNISONE TAB [Concomitant]
  3. ASACOL [Concomitant]

REACTIONS (3)
  - HEPATIC FAILURE [None]
  - LIVER TRANSPLANT [None]
  - RENAL TRANSPLANT [None]
